FAERS Safety Report 8840250 (Version 1)
Quarter: 2012Q4

REPORT INFORMATION
  Report Type: Report from Study
  Country: FR (occurrence: FR)
  Receive Date: 20121015
  Receipt Date: 20121015
  Transmission Date: 20130627
  Serious: Yes (Hospitalization)
  Sender: FDA-Public Use
  Company Number: FR-VIIV HEALTHCARE LIMITED-B0835405A

PATIENT
  Age: 41 Year
  Sex: Male

DRUGS (5)
  1. CELSENTRI [Suspect]
     Indication: HIV INFECTION
     Dosage: 150MG Twice per day
     Route: 048
     Dates: start: 20100517, end: 20120514
  2. TRUVADA [Suspect]
     Indication: HIV INFECTION
     Route: 048
     Dates: start: 20100517, end: 20120514
  3. NORVIR [Suspect]
     Indication: HIV INFECTION
     Dosage: 100MG Per day
     Route: 048
     Dates: start: 20100517, end: 20120514
  4. PREZISTA [Suspect]
     Indication: HIV INFECTION
     Dosage: 800MG Per day
     Route: 048
     Dates: start: 20100517, end: 20120514
  5. ISENTRESS [Suspect]
     Indication: HIV INFECTION
     Dosage: 400MG Twice per day
     Dates: start: 20100517, end: 20120514

REACTIONS (2)
  - Malaise [Recovered/Resolved]
  - Loss of consciousness [Recovering/Resolving]
